FAERS Safety Report 5284193-2 (Version None)
Quarter: 2007Q2

REPORT INFORMATION
  Report Type: 
  Country: None (occurrence: None)
  Receive Date: 20070403
  Receipt Date: 20070328
  Transmission Date: 20071010
  Serious: Yes (Other)
  Sender: FDA-Public Use
  Company Number: GBWYE234628MAR07

PATIENT
  Age: 35 Year
  Sex: Male

DRUGS (2)
  1. EFFEXOR XR [Suspect]
     Dosage: EITHER ON 150MG OR 225MG DAILY
  2. EFFEXOR XR [Suspect]
     Dosage: UNKNOWN

REACTIONS (3)
  - DRUG WITHDRAWAL SYNDROME [None]
  - HALLUCINATION, VISUAL [None]
  - PSYCHOTIC DISORDER [None]
